FAERS Safety Report 23217849 (Version 1)
Quarter: 2023Q4

REPORT INFORMATION
  Report Type: Spontaneous
  Country: LT (occurrence: LT)
  Receive Date: 20231122
  Receipt Date: 20231122
  Transmission Date: 20240110
  Serious: Yes (Other)
  Sender: FDA-Public Use
  Company Number: None

PATIENT
  Age: 67 Year
  Sex: Male
  Weight: 70 kg

DRUGS (2)
  1. PAXLOVID [Interacting]
     Active Substance: NIRMATRELVIR\RITONAVIR
     Indication: COVID-19 treatment
     Dosage: UNK
     Route: 048
     Dates: start: 20231108
  2. TICAGRELOR [Interacting]
     Active Substance: TICAGRELOR
     Dosage: 1 DF, 1X/DAY

REACTIONS (3)
  - Drug interaction [Unknown]
  - Pharyngeal haemorrhage [Recovered/Resolved]
  - Oral discomfort [Recovering/Resolving]

NARRATIVE: CASE EVENT DATE: 20231101
